FAERS Safety Report 7450196-2 (Version None)
Quarter: 2011Q1

REPORT INFORMATION
  Report Type: 
  Country: None (occurrence: None)
  Receive Date: 20110302
  Receipt Date: 20110113
  Transmission Date: 20110831
  Serious: No
  Sender: FDA-Public Use
  Company Number: 023416

PATIENT
  Sex: Female

DRUGS (1)
  1. CIMZIA [Suspect]
     Indication: CROHN'S DISEASE
     Dosage: (SUBCUTANEOUS)
     Route: 058
     Dates: start: 20101122

REACTIONS (9)
  - FREQUENT BOWEL MOVEMENTS [None]
  - COLITIS [None]
  - INJECTION SITE URTICARIA [None]
  - INCREASED TENDENCY TO BRUISE [None]
  - FATIGUE [None]
  - DIARRHOEA [None]
  - PRURITUS [None]
  - INJECTION SITE DISCOLOURATION [None]
  - INJECTION SITE HAEMATOMA [None]
